FAERS Safety Report 18454078 (Version 1)
Quarter: 2020Q4

REPORT INFORMATION
  Report Type: Spontaneous
  Country: US (occurrence: US)
  Receive Date: 20201102
  Receipt Date: 20201102
  Transmission Date: 20210114
  Serious: No
  Sender: FDA-Public Use
  Company Number: US-AMGEN-USASP2020173993

PATIENT
  Sex: Female

DRUGS (1)
  1. REPATHA [Suspect]
     Active Substance: EVOLOCUMAB
     Indication: HYPERLIPIDAEMIA
     Dosage: 140 MILLIGRAM, Q2WK
     Route: 065
     Dates: start: 202008, end: 202010

REACTIONS (10)
  - Erythema [Recovered/Resolved]
  - Musculoskeletal stiffness [Recovering/Resolving]
  - Oedema peripheral [Recovering/Resolving]
  - Sleep disorder due to a general medical condition [Unknown]
  - Myalgia [Unknown]
  - Arthralgia [Unknown]
  - Weight increased [Recovered/Resolved]
  - Headache [Unknown]
  - High density lipoprotein increased [Unknown]
  - Restless legs syndrome [Not Recovered/Not Resolved]
